FAERS Safety Report 4771000-7 (Version None)
Quarter: 2005Q3

REPORT INFORMATION
  Report Type: 
  Country: None (occurrence: None)
  Receive Date: 20050914
  Receipt Date: 20050830
  Transmission Date: 20060218
  Serious: Yes (Hospitalization, Other)
  Sender: FDA-Public Use
  Company Number: 2005S1006621

PATIENT
  Age: 68 Year
  Sex: Male

DRUGS (3)
  1. APOMORPHINE HYDROCHLORIDE (APOMORPHINE HYDROCHLORIDE) [Suspect]
     Indication: PARKINSON'S DISEASE
     Dosage: 6 MG/HR; ID
     Route: 026
     Dates: start: 20030901
  2. LEVODOPA/BENSERAZIDE HYDROCHLORIDE [Concomitant]
  3. CABERGOLINE [Concomitant]

REACTIONS (4)
  - ERYTHEMA [None]
  - INFECTION [None]
  - SKIN NODULE [None]
  - SWELLING [None]
